FAERS Safety Report 15800653 (Version 1)
Quarter: 2019Q1

REPORT INFORMATION
  Report Type: Spontaneous
  Country: PT (occurrence: PT)
  Receive Date: 20190109
  Receipt Date: 20190109
  Transmission Date: 20190417
  Serious: Yes (Other)
  Sender: FDA-Public Use
  Company Number: PT-MIDATECHPHARMA-2018-PT-000045

PATIENT
  Age: 51 Year
  Sex: Female

DRUGS (1)
  1. TAMOXIFEN (NON-SPECIFIC) [Suspect]
     Active Substance: TAMOXIFEN
     Indication: BREAST CANCER
     Dosage: 20 MG DAILY

REACTIONS (1)
  - Porphyria non-acute [Unknown]
